FAERS Safety Report 24171993 (Version 1)
Quarter: 2024Q3

REPORT INFORMATION
  Report Type: Spontaneous
  Country: NZ (occurrence: NZ)
  Receive Date: 20240805
  Receipt Date: 20240805
  Transmission Date: 20241016
  Serious: Yes (Other)
  Sender: EMD SERONO INC
  Company Number: NZ-Merck Healthcare KGaA-2024041337

PATIENT
  Age: 22 Year
  Sex: Male

DRUGS (1)
  1. SOMATROPIN [Suspect]
     Active Substance: SOMATROPIN
     Indication: Product used for unknown indication

REACTIONS (4)
  - Glomerulonephritis [Unknown]
  - Fracture [Unknown]
  - Gastrooesophageal reflux disease [Unknown]
  - Anaemia [Unknown]
